FAERS Safety Report 9295813 (Version 1)
Quarter: 2013Q2

REPORT INFORMATION
  Report Type: Report from Study
  Country: JP (occurrence: JP)
  Receive Date: 20130517
  Receipt Date: 20130517
  Transmission Date: 20140414
  Serious: Yes (Other)
  Sender: FDA-Public Use
  Company Number: JP-PFIZER INC-2013148541

PATIENT
  Age: 65 Year
  Sex: Male

DRUGS (1)
  1. PACLITAXEL [Suspect]
     Indication: OESOPHAGEAL CARCINOMA
     Dosage: SIX CYCLES

REACTIONS (1)
  - Hepatitis [Unknown]
